FAERS Safety Report 8608010 (Version 2)
Quarter: 2012Q4

REPORT INFORMATION
  Report Type: Report from Study
  Country: AT (occurrence: AT)
  Receive Date: 20120611
  Receipt Date: 20121121
  Transmission Date: 20130627
  Serious: Yes (Hospitalization)
  Sender: FDA-Public Use
  Company Number: AT-PFIZER INC-2012080341

PATIENT
  Age: 61 Year
  Sex: Female
  Weight: 56 kg

DRUGS (2)
  1. CRIZOTINIB [Suspect]
     Indication: BRONCHIAL NEOPLASM
     Dosage: 250 mg, 2x/day
     Dates: start: 20111010
  2. CRIZOTINIB [Suspect]
     Dosage: 500 mg, daily
     Dates: start: 20120308, end: 20120321

REACTIONS (3)
  - Keratopathy [Recovered/Resolved]
  - Pneumonia [Not Recovered/Not Resolved]
  - General physical health deterioration [Recovered/Resolved]
